FAERS Safety Report 7597870-5 (Version None)
Quarter: 2011Q3

REPORT INFORMATION
  Report Type: 
  Country: None (occurrence: None)
  Receive Date: 20110708
  Receipt Date: 20110701
  Transmission Date: 20111222
  Serious: Yes (Other)
  Sender: FDA-Public Use
  Company Number: JP-MERCK-1106USA04379

PATIENT
  Age: 74 Year
  Sex: Female

DRUGS (12)
  1. PREDNISOLONE [Concomitant]
     Route: 065
  2. MIDAZOLAM HCL [Concomitant]
     Route: 065
  3. MEROPENEM [Concomitant]
     Route: 065
  4. HUMULIN R [Concomitant]
     Route: 065
  5. LASIX [Concomitant]
     Route: 065
  6. PEPCID [Suspect]
     Route: 042
     Dates: start: 20110606
  7. LEPETAN [Concomitant]
     Route: 065
  8. MORPHINE HYDROCHLORIDE [Concomitant]
     Route: 065
  9. ROCURONIUM BROMIDE [Concomitant]
     Route: 065
  10. TPN [Concomitant]
     Route: 065
  11. VANCOMYCIN HYDROCHLORIDE [Concomitant]
     Route: 065
  12. ALBUMIN HUMAN [Concomitant]
     Route: 065

REACTIONS (1)
  - RHABDOMYOLYSIS [None]
